FAERS Safety Report 6178272-5 (Version None)
Quarter: 2009Q2

REPORT INFORMATION
  Report Type: 
  Country: None (occurrence: None)
  Receive Date: 20090504
  Receipt Date: 20090424
  Transmission Date: 20091009
  Serious: Yes (Other)
  Sender: FDA-Public Use
  Company Number: A0781906A

PATIENT
  Age: 53 Year
  Sex: Female

DRUGS (2)
  1. ZYBAN [Suspect]
     Indication: DRUG USE FOR UNKNOWN INDICATION
     Dosage: 150MG TWICE PER DAY
     Route: 065
     Dates: start: 20090415
  2. OTHER MEDICATIONS [Concomitant]

REACTIONS (5)
  - AGITATION [None]
  - CRYING [None]
  - DEPRESSION [None]
  - INSOMNIA [None]
  - LOSS OF CONSCIOUSNESS [None]
